FAERS Safety Report 8515749-9 (Version None)
Quarter: 2012Q3

REPORT INFORMATION
  Report Type: 
  Country: None (occurrence: None)
  Receive Date: 20120717
  Receipt Date: 20120713
  Transmission Date: 20120928
  Serious: Yes (Congenital Anomaly)
  Sender: FDA-Public Use
  Company Number: GXKR2012DE002252

PATIENT

DRUGS (2)
  1. RISPERIDONE [Suspect]
     Dosage: MATERNAL DOSE: 2 MG, DAILY
     Route: 064
     Dates: start: 20110621, end: 20120402
  2. FOLIC ACID [Concomitant]
     Dosage: MATERNAL DOSE: 0.4 MG, DAILY
     Route: 064

REACTIONS (2)
  - HAEMANGIOMA [None]
  - FOETAL EXPOSURE DURING PREGNANCY [None]
